FAERS Safety Report 7820193-3 (Version None)
Quarter: 2011Q4

REPORT INFORMATION
  Report Type: 
  Country: None (occurrence: None)
  Receive Date: 20111018
  Receipt Date: 20111014
  Transmission Date: 20120403
  Serious: Yes (Life-Threatening, Hospitalization, Other)
  Sender: FDA-Public Use
  Company Number: ES-PFIZER INC-2011242452

PATIENT
  Age: 19 Year
  Sex: Male

DRUGS (2)
  1. KETAMINE HCL [Suspect]
     Indication: SUBSTANCE USE
     Dosage: BETWEEN 100 AND 200 ML  AT UNKNOWN CONCENTRATION
     Route: 048
  2. ETHANOL [Suspect]

REACTIONS (5)
  - BRADYCARDIA [None]
  - DEPRESSED LEVEL OF CONSCIOUSNESS [None]
  - OVERDOSE [None]
  - COMA [None]
  - HYPOTENSION [None]
